FAERS Safety Report 9866427 (Version 1)
Quarter: 2014Q1

REPORT INFORMATION
  Report Type: Report from Study
  Country: US (occurrence: US)
  Receive Date: 20140204
  Receipt Date: 20140204
  Transmission Date: 20141002
  Serious: Yes (Hospitalization)
  Sender: FDA-Public Use
  Company Number: US-ROCHE-1340316

PATIENT
  Age: 73 Year
  Sex: Male

DRUGS (2)
  1. LUCENTIS [Suspect]
     Indication: GLAUCOMA
     Route: 050
  2. LANTUS [Concomitant]
     Indication: DIABETES MELLITUS

REACTIONS (3)
  - Surgery [Unknown]
  - Electrocardiogram abnormal [Unknown]
  - Panic reaction [Unknown]
